FAERS Safety Report 5731507-2 (Version None)
Quarter: 2008Q2

REPORT INFORMATION
  Report Type: 
  Country: None (occurrence: None)
  Receive Date: 20080506
  Receipt Date: 20080506
  Transmission Date: 20081010
  Serious: Yes (Hospitalization)
  Sender: FDA-Public Use
  Company Number: None

PATIENT
  Age: 17 Year
  Sex: Male
  Weight: 86.1834 kg

DRUGS (1)
  1. ACCUTANE [Suspect]

REACTIONS (2)
  - CONDITION AGGRAVATED [None]
  - RECTAL PROLAPSE [None]
